FAERS Safety Report 5969300-8 (Version None)
Quarter: 2008Q4

REPORT INFORMATION
  Report Type: 
  Country: None (occurrence: None)
  Receive Date: 20081126
  Receipt Date: 20081119
  Transmission Date: 20090506
  Serious: Yes (Other)
  Sender: FDA-Public Use
  Company Number: GB-PFIZER INC-2008005403

PATIENT
  Weight: 75 kg

DRUGS (1)
  1. CABERGOLINE [Suspect]
     Indication: HYPERPROLACTINAEMIA
     Route: 064
     Dates: start: 20070906, end: 20071223

REACTIONS (2)
  - DRUG EXPOSURE DURING PREGNANCY [None]
  - FOETAL HEART RATE DECREASED [None]
